FAERS Safety Report 15531588 (Version 3)
Quarter: 2019Q1

REPORT INFORMATION
  Report Type: Report from Study
  Country: CA (occurrence: CA)
  Receive Date: 20181019
  Receipt Date: 20190220
  Transmission Date: 20190417
  Serious: Yes (Other)
  Sender: FDA-Public Use
  Company Number: CA-UCBSA-2018039282

PATIENT
  Sex: Female

DRUGS (2)
  1. CERTOLIZUMAB PEGOL AUTOCLICKS [Suspect]
     Active Substance: CERTOLIZUMAB PEGOL
     Dosage: 200 MG, EV 2 WEEKS(QOW)
     Route: 058
     Dates: start: 20180501
  2. CERTOLIZUMAB PEGOL AUTOCLICKS [Suspect]
     Active Substance: CERTOLIZUMAB PEGOL
     Indication: RHEUMATOID ARTHRITIS
     Dosage: 400 MG, EV 2 WEEKS(QOW)
     Route: 058
     Dates: start: 20180620, end: 20180718

REACTIONS (8)
  - Joint dislocation [Unknown]
  - Patella fracture [Unknown]
  - Fall [Unknown]
  - Hand fracture [Unknown]
  - Arthralgia [Unknown]
  - Psoriasis [Unknown]
  - Upper limb fracture [Unknown]
  - Nail discolouration [Unknown]

NARRATIVE: CASE EVENT DATE: 2018
